FAERS Safety Report 8287756-5 (Version None)
Quarter: 2012Q2

REPORT INFORMATION
  Report Type: 
  Country: None (occurrence: None)
  Receive Date: 20120416
  Receipt Date: 20111209
  Transmission Date: 20120825
  Serious: Yes (Hospitalization)
  Sender: FDA-Public Use
  Company Number: E2020-10092-SPO-US

PATIENT
  Age: 93 Year
  Sex: Male

DRUGS (2)
  1. NAMENDA [Concomitant]
  2. ARICEPT [Suspect]
     Indication: DEMENTIA ALZHEIMER'S TYPE
     Dosage: 10 MG, 1 IN 1 D, ORAL
     Route: 048
     Dates: start: 19980101, end: 20100101

REACTIONS (3)
  - FALL [None]
  - AORTIC STENOSIS [None]
  - ANAEMIA [None]
